FAERS Safety Report 24978633 (Version 3)
Quarter: 2025Q2

REPORT INFORMATION
  Report Type: Report from Study
  Country: CA (occurrence: CA)
  Receive Date: 20250218
  Receipt Date: 20250405
  Transmission Date: 20250716
  Serious: Yes (Other)
  Sender: CSL BEHRING
  Company Number: CA-BEH-2024186657

PATIENT
  Age: 63 Year
  Sex: Female
  Weight: 79.365 kg

DRUGS (13)
  1. HIZENTRA [Suspect]
     Active Substance: HUMAN IMMUNOGLOBULIN G
     Indication: Secondary immunodeficiency
     Dosage: 15 G, QW
     Route: 065
     Dates: start: 20241121
  2. HIZENTRA [Suspect]
     Active Substance: HUMAN IMMUNOGLOBULIN G
     Dosage: 15 G, QW
     Route: 065
  3. HIZENTRA [Suspect]
     Active Substance: HUMAN IMMUNOGLOBULIN G
     Dosage: 15 G, QW
     Route: 065
  4. HIZENTRA [Suspect]
     Active Substance: HUMAN IMMUNOGLOBULIN G
     Dosage: 15 G, QW
     Route: 065
     Dates: start: 20241121
  5. HIZENTRA [Suspect]
     Active Substance: HUMAN IMMUNOGLOBULIN G
     Dosage: 7.5 G, QW
     Route: 065
     Dates: start: 20241121
  6. HIZENTRA [Suspect]
     Active Substance: HUMAN IMMUNOGLOBULIN G
     Dosage: 7 G, QW
     Route: 065
     Dates: start: 20241121
  7. HIZENTRA [Suspect]
     Active Substance: HUMAN IMMUNOGLOBULIN G
     Dosage: 35 ML, QW
     Route: 065
  8. HIZENTRA [Suspect]
     Active Substance: HUMAN IMMUNOGLOBULIN G
     Dosage: (PRODUCT STRENGTH REPORTED AS 7G), QW
     Route: 058
     Dates: start: 20241121, end: 20250207
  9. HIZENTRA [Suspect]
     Active Substance: HUMAN IMMUNOGLOBULIN G
     Dosage: (PRODUCT STRENGTH REPORTED AS 7G), QW
     Route: 058
     Dates: start: 20241121, end: 20250211
  10. CALCIUM [Concomitant]
     Active Substance: CALCIUM
  11. VITAMIN D [Concomitant]
     Active Substance: VITAMIN D NOS
  12. LEFLUNOMIDE [Concomitant]
     Active Substance: LEFLUNOMIDE
  13. SULFATRIM [Concomitant]
     Active Substance: SULFAMETHOXAZOLE\TRIMETHOPRIM

REACTIONS (20)
  - Ventricular extrasystoles [Unknown]
  - Paraesthesia [Unknown]
  - Injection site pruritus [Unknown]
  - Injection site oedema [Unknown]
  - Injection site induration [Unknown]
  - Malaise [Unknown]
  - Dizziness [Unknown]
  - Nausea [Unknown]
  - Vomiting [Unknown]
  - Asthenia [Unknown]
  - Asthenia [Unknown]
  - Balance disorder [Unknown]
  - Therapy change [Unknown]
  - Malaise [Unknown]
  - Palpitations [Unknown]
  - Fatigue [Unknown]
  - Immunoglobulins decreased [Unknown]
  - Therapy interrupted [Unknown]
  - Therapy cessation [Unknown]
  - Fatigue [Unknown]

NARRATIVE: CASE EVENT DATE: 20241121
